FAERS Safety Report 7502009-8 (Version None)
Quarter: 2011Q2

REPORT INFORMATION
  Report Type: 
  Country: None (occurrence: None)
  Receive Date: 20110525
  Receipt Date: 20110511
  Transmission Date: 20111010
  Serious: Yes (Other)
  Sender: FDA-Public Use
  Company Number: DE-RANBAXY-2011RR-44574

PATIENT
  Age: 74 Year
  Sex: Male
  Weight: 80 kg

DRUGS (7)
  1. EFIENT 10 [Concomitant]
     Dosage: UNK
  2. PANTOZOL 20 MG [Concomitant]
     Dosage: UNK
  3. BISOPROLOL 5 [Concomitant]
     Dosage: UNK
  4. XARELTO 5 [Concomitant]
     Dosage: UNK
  5. SIMVASTATIN [Suspect]
     Indication: ACUTE MYOCARDIAL INFARCTION
     Dosage: UNK
     Route: 048
     Dates: start: 20101203, end: 20101211
  6. ASS 100 [Concomitant]
     Dosage: UNK
     Route: 048
  7. TOREM 10 [Concomitant]
     Dosage: UNK

REACTIONS (3)
  - PAIN IN EXTREMITY [None]
  - BLOOD CREATINE PHOSPHOKINASE INCREASED [None]
  - RHABDOMYOLYSIS [None]
